FAERS Safety Report 5479202-1 (Version None)
Quarter: 2007Q4

REPORT INFORMATION
  Report Type: 
  Country: None (occurrence: None)
  Receive Date: 20071003
  Receipt Date: 20070924
  Transmission Date: 20080405
  Serious: Yes (Hospitalization, Other)
  Sender: FDA-Public Use
  Company Number: 07H-163-0313049-00

PATIENT
  Age: 34 Year
  Sex: Female
  Weight: 68.2 kg

DRUGS (11)
  1. DEXMEDETOMIDINE  INJECTION (DEXMEDETOMIDINE HYDROCHLORIDE INJECTION) ( [Suspect]
     Indication: SEDATION
     Dosage: 10 ML, 1 IN 1 HR, INTRAVENOUS
     Route: 042
     Dates: start: 20070802, end: 20070805
  2. ALBUTEROL [Concomitant]
  3. ATROVENT [Concomitant]
  4. AMBIEN [Concomitant]
  5. PROTONIX [Concomitant]
  6. ZOSYN [Concomitant]
  7. SYNTHROID [Concomitant]
  8. POTASSIUM CHLORIDE [Concomitant]
  9. NEXIUM [Concomitant]
  10. ROZEREM [Concomitant]
  11. ATIVAN [Concomitant]

REACTIONS (11)
  - DISEASE RECURRENCE [None]
  - DRUG TOXICITY [None]
  - DRUG WITHDRAWAL CONVULSIONS [None]
  - FEELING JITTERY [None]
  - GRAND MAL CONVULSION [None]
  - METABOLIC ACIDOSIS [None]
  - NERVOUSNESS [None]
  - OCCULT BLOOD POSITIVE [None]
  - OVERDOSE [None]
  - PNEUMONIA [None]
  - RESPIRATORY RATE INCREASED [None]
